FAERS Safety Report 7272972-1 (Version None)
Quarter: 2011Q1

REPORT INFORMATION
  Report Type: 
  Country: None (occurrence: None)
  Receive Date: 20110203
  Receipt Date: 20110124
  Transmission Date: 20110831
  Serious: Yes (Hospitalization, Congenital Anomaly)
  Sender: FDA-Public Use
  Company Number: A0883898A

PATIENT
  Sex: Female

DRUGS (2)
  1. PAXIL [Suspect]
     Route: 064
  2. METHYLAMPHETAMINE [Concomitant]
     Route: 064

REACTIONS (6)
  - HYPOPLASTIC LEFT HEART SYNDROME [None]
  - HEART TRANSPLANT [None]
  - CONGENITAL PULMONARY VALVE DISORDER [None]
  - PATENT DUCTUS ARTERIOSUS [None]
  - PULMONARY ARTERY STENOSIS CONGENITAL [None]
  - DRUG EXPOSURE DURING PREGNANCY [None]
